FAERS Safety Report 17252033 (Version 2)
Quarter: 2020Q1

REPORT INFORMATION
  Report Type: Spontaneous
  Country: US (occurrence: US)
  Receive Date: 20200109
  Receipt Date: 20200114
  Transmission Date: 20200409
  Serious: Yes (Other)
  Sender: FDA-Public Use
  Company Number: US-PFIZER INC-2020003650

PATIENT
  Age: 34 Year
  Sex: Female

DRUGS (11)
  1. MEROPENEM. [Concomitant]
     Active Substance: MEROPENEM
     Indication: EVIDENCE BASED TREATMENT
  2. FUROSEMIDE. [Concomitant]
     Active Substance: FUROSEMIDE
     Indication: POLYURIA
     Dosage: 200 MG, UNK
     Route: 040
  3. PREDNISONE. [Concomitant]
     Active Substance: PREDNISONE
     Indication: IMMUNOSUPPRESSANT DRUG THERAPY
     Dosage: 5 MG, DAILY
  4. TACROLIMUS. [Suspect]
     Active Substance: TACROLIMUS
     Indication: IMMUNOSUPPRESSANT DRUG THERAPY
     Dosage: 2 MG, 2X/DAY
  5. MYCOPHENOLATE [Concomitant]
     Active Substance: MYCOPHENOLIC ACID
     Indication: IMMUNOSUPPRESSANT DRUG THERAPY
     Dosage: 1000 MG, DAILY
  6. DOXYCYCLINE. [Concomitant]
     Active Substance: DOXYCYCLINE
     Indication: LUNG INFILTRATION
     Dosage: UNK
  7. DOXYCYCLINE. [Concomitant]
     Active Substance: DOXYCYCLINE
     Indication: EVIDENCE BASED TREATMENT
  8. FILGRASTIM [Concomitant]
     Active Substance: FILGRASTIM
     Dosage: UNK
     Route: 042
  9. VANCOMYCIN [Concomitant]
     Active Substance: VANCOMYCIN
     Indication: LUNG INFILTRATION
     Dosage: UNK
  10. VANCOMYCIN [Concomitant]
     Active Substance: VANCOMYCIN
     Indication: EVIDENCE BASED TREATMENT
  11. MEROPENEM. [Concomitant]
     Active Substance: MEROPENEM
     Indication: LUNG INFILTRATION
     Dosage: UNK

REACTIONS (1)
  - Organising pneumonia [Unknown]
